FAERS Safety Report 21249782 (Version 3)
Quarter: 2023Q1

REPORT INFORMATION
  Report Type: Spontaneous
  Country: US (occurrence: US)
  Receive Date: 20220824
  Receipt Date: 20230215
  Transmission Date: 20230417
  Serious: No
  Sender: FDA-Public Use
  Company Number: US-JUBILANT PHARMA LTD-2022US000272

PATIENT
  Sex: Male

DRUGS (1)
  1. DRAXIMAGE DTPA [Suspect]
     Active Substance: TECHNETIUM TC-99M PENTETATE
     Indication: Perfusion brain scan
     Dosage: 20.4 MCI, SINGLE DOSE
     Dates: start: 20220621, end: 20220621

REACTIONS (1)
  - Drug ineffective [Unknown]

NARRATIVE: CASE EVENT DATE: 20220621
